FAERS Safety Report 26120848 (Version 1)
Quarter: 2025Q4

REPORT INFORMATION
  Report Type: Spontaneous
  Country: US (occurrence: US)
  Receive Date: 20251204
  Receipt Date: 20251204
  Transmission Date: 20260118
  Serious: Yes (Other)
  Sender: MERZ
  Company Number: US-Merz Pharmaceuticals GmbH-2025110000171

PATIENT

DRUGS (4)
  1. XEOMIN [Suspect]
     Active Substance: INCOBOTULINUMTOXINA
     Indication: Skin cosmetic procedure
     Dates: start: 20251030, end: 20251030
  2. XEOMIN [Suspect]
     Active Substance: INCOBOTULINUMTOXINA
     Indication: Skin cosmetic procedure
  3. XEOMIN [Suspect]
     Active Substance: INCOBOTULINUMTOXINA
     Indication: Skin cosmetic procedure
  4. BOTOX [Concomitant]
     Active Substance: ONABOTULINUMTOXINA

REACTIONS (14)
  - Blood disorder [Unknown]
  - Throat tightness [Unknown]
  - Malaise [Unknown]
  - Head discomfort [Unknown]
  - Oral disorder [Unknown]
  - Injection site swelling [Unknown]
  - Urinary incontinence [Unknown]
  - Dysphonia [Unknown]
  - Injection site paraesthesia [Unknown]
  - Injection site pain [Unknown]
  - Eating disorder [Unknown]
  - Eye swelling [Unknown]
  - Dyspnoea [Unknown]
  - Injection site swelling [Unknown]

NARRATIVE: CASE EVENT DATE: 20251101
